FAERS Safety Report 9750029 (Version 2)
Quarter: 2015Q3

REPORT INFORMATION
  Report Type: Spontaneous
  Country: DE (occurrence: DE)
  Receive Date: 20131212
  Receipt Date: 20150730
  Transmission Date: 20151125
  Serious: No
  Sender: FDA-Public Use
  Company Number: DE-GILEAD-DE-CVT-090658

PATIENT
  Age: 83 Year
  Sex: Male

DRUGS (14)
  1. INDOMET                            /00003801/ [Concomitant]
     Route: 048
  2. HCT [Concomitant]
     Active Substance: HYDROCHLOROTHIAZIDE
     Route: 048
  3. MODIP [Concomitant]
     Active Substance: FELODIPINE
     Route: 048
  4. IMUREK                             /00001501/ [Concomitant]
     Active Substance: AZATHIOPRINE
     Route: 048
  5. ASPIRIN. [Concomitant]
     Active Substance: ASPIRIN
     Route: 048
  6. SYMBICORT [Concomitant]
     Active Substance: BUDESONIDE\FORMOTEROL FUMARATE DIHYDRATE
  7. TORASEMIDE [Concomitant]
     Active Substance: TORSEMIDE
     Route: 048
  8. MOLSIDOMIN [Concomitant]
     Route: 048
  9. RANEXA [Suspect]
     Active Substance: RANOLAZINE
     Indication: ANGINA UNSTABLE
     Route: 048
     Dates: start: 20090918, end: 20090927
  10. GLYCERYL TRINITRATE [Concomitant]
     Active Substance: NITROGLYCERIN
  11. PENTALONG [Concomitant]
     Active Substance: PENTAERYTHRITOL TETRANITRATE
     Route: 048
  12. BISOPROLOL                         /00802601/ [Concomitant]
     Active Substance: BISOPROLOL
     Route: 048
  13. ATACAND [Concomitant]
     Active Substance: CANDESARTAN CILEXETIL
     Route: 048
  14. OMEPRAZOL [Concomitant]
     Active Substance: OMEPRAZOLE
     Route: 048

REACTIONS (1)
  - Constipation [Recovered/Resolved]

NARRATIVE: CASE EVENT DATE: 20090919
